FAERS Safety Report 10232454 (Version 4)
Quarter: 2015Q4

REPORT INFORMATION
  Report Type: Spontaneous
  Country: US (occurrence: US)
  Receive Date: 20140612
  Receipt Date: 20151118
  Transmission Date: 20160304
  Serious: No
  Sender: FDA-Public Use
  Company Number: US-JNJFOC-20140518961

PATIENT
  Sex: Male
  Weight: 67.13 kg

DRUGS (3)
  1. DURAGESIC [Suspect]
     Active Substance: FENTANYL
     Indication: OSTEOARTHRITIS
     Route: 062
     Dates: start: 2013
  2. NUCYNTA [Concomitant]
     Active Substance: TAPENTADOL HYDROCHLORIDE
     Indication: BREAKTHROUGH PAIN
     Route: 065
  3. DURAGESIC [Suspect]
     Active Substance: FENTANYL
     Indication: RHEUMATOID ARTHRITIS
     Route: 062
     Dates: start: 2013

REACTIONS (9)
  - Inappropriate schedule of drug administration [Unknown]
  - Product quality issue [Recovered/Resolved]
  - Drug ineffective [Unknown]
  - Drug dose omission [Unknown]
  - Product quality issue [Unknown]
  - Product packaging issue [Unknown]
  - Product quality issue [Unknown]
  - Wrong technique in product usage process [Unknown]
  - Poor quality drug administered [Unknown]

NARRATIVE: CASE EVENT DATE: 2014
